FAERS Safety Report 20867894 (Version 1)
Quarter: 2022Q2

REPORT INFORMATION
  Report Type: Spontaneous
  Country: RU (occurrence: RU)
  Receive Date: 20220524
  Receipt Date: 20220524
  Transmission Date: 20220720
  Serious: Yes (Other)
  Sender: FDA-Public Use
  Company Number: RU-Merck Healthcare KGaA-9323309

PATIENT
  Sex: Male

DRUGS (7)
  1. ERBITUX [Suspect]
     Active Substance: CETUXIMAB
     Indication: Colorectal cancer metastatic
     Dosage: UNK UNK, UNKNOWN (EIGHT COURSES)
     Route: 065
     Dates: start: 20191003, end: 20200123
  2. ERBITUX [Suspect]
     Active Substance: CETUXIMAB
     Dosage: 500 MG/M2, 2/M
     Route: 065
     Dates: start: 20200313, end: 20211111
  3. ERBITUX [Suspect]
     Active Substance: CETUXIMAB
     Dosage: 500 MG/M2, 2/M
     Route: 065
     Dates: start: 20220208, end: 20220512
  4. OXALIPLATIN [Concomitant]
     Active Substance: OXALIPLATIN
     Indication: Colorectal cancer metastatic
     Dosage: 5 COURSES
     Dates: start: 20160324, end: 20161006
  5. OXALIPLATIN [Concomitant]
     Active Substance: OXALIPLATIN
     Dosage: EIGHT COURSES
     Dates: start: 20191003, end: 20200123
  6. LEUCOVORIN CALCIUM [Concomitant]
     Active Substance: LEUCOVORIN CALCIUM
     Indication: Colorectal cancer metastatic
     Dosage: EIGHT COURSES
     Dates: start: 20191003, end: 20200123
  7. FLUOROURACIL [Concomitant]
     Active Substance: FLUOROURACIL
     Indication: Colorectal cancer metastatic
     Dosage: EIGHT COURSES
     Dates: start: 20191003, end: 20200123

REACTIONS (2)
  - Thrombocytopenia [Unknown]
  - Off label use [Unknown]
